FAERS Safety Report 6103665-1 (Version None)
Quarter: 2009Q1

REPORT INFORMATION
  Report Type: 
  Country: None (occurrence: None)
  Receive Date: 20090302
  Receipt Date: 20090218
  Transmission Date: 20090719
  Serious: Yes (Other)
  Sender: FDA-Public Use
  Company Number: 2009-191623-NL

PATIENT
  Age: 19 Year
  Sex: Male

DRUGS (2)
  1. NUVARING [Suspect]
     Dates: start: 20080821, end: 20081001
  2. CELEXA [Concomitant]

REACTIONS (5)
  - PELVIC INFLAMMATORY DISEASE [None]
  - PELVIC PAIN [None]
  - SALPINGITIS [None]
  - VAGINAL HAEMORRHAGE [None]
  - VENOUS THROMBOSIS [None]
